FAERS Safety Report 7562053-1 (Version None)
Quarter: 2011Q2

REPORT INFORMATION
  Report Type: 
  Country: None (occurrence: None)
  Receive Date: 20110622
  Receipt Date: 20110404
  Transmission Date: 20111010
  Serious: Yes (Hospitalization)
  Sender: FDA-Public Use
  Company Number: PHHY2011US26257

PATIENT
  Sex: Male

DRUGS (1)
  1. TEKTURNA [Suspect]
     Dosage: UNK
     Dates: start: 20101201

REACTIONS (2)
  - HYPERTENSIVE CRISIS [None]
  - RENAL FAILURE [None]
